FAERS Safety Report 11027696 (Version 1)
Quarter: 2015Q2

REPORT INFORMATION
  Report Type: Spontaneous
  Country: US (occurrence: US)
  Receive Date: 20150414
  Receipt Date: 20150414
  Transmission Date: 20150821
  Serious: Yes (Death, Hospitalization, Other)
  Sender: FDA-Public Use
  Company Number: US-BAYER-2015-117689

PATIENT
  Age: 78 Year
  Sex: Male
  Weight: 104 kg

DRUGS (29)
  1. SINGULAIR [Concomitant]
     Active Substance: MONTELUKAST SODIUM
     Dosage: UNK UNK, UNK
  2. AMBIEN [Concomitant]
     Active Substance: ZOLPIDEM TARTRATE
     Dosage: UNK UNK, UNK
     Dates: start: 20131118
  3. IPRATROPIUM [Concomitant]
     Active Substance: IPRATROPIUM
     Dosage: UNK UNK, UNK
     Dates: start: 20131118
  4. PREDNISONE. [Concomitant]
     Active Substance: PREDNISONE
     Dosage: UNK UNK, UNK
     Dates: start: 20141028
  5. SYMBICORT [Concomitant]
     Active Substance: BUDESONIDE\FORMOTEROL FUMARATE DIHYDRATE
     Dosage: UNK UNK, UNK
     Dates: start: 20131118
  6. COMBIVENT [Concomitant]
     Active Substance: ALBUTEROL SULFATE\IPRATROPIUM BROMIDE
     Dosage: UNK UNK, UNK
     Dates: start: 20131118
  7. VINCRISTINE SULFATE. [Concomitant]
     Active Substance: VINCRISTINE SULFATE
  8. SPIRIVA [Concomitant]
     Active Substance: TIOTROPIUM BROMIDE MONOHYDRATE
     Dosage: UNK UNK, UNK
     Dates: start: 20131118
  9. XOLAIR [Concomitant]
     Active Substance: OMALIZUMAB
  10. VICODIN [Concomitant]
     Active Substance: ACETAMINOPHEN\HYDROCODONE BITARTRATE
     Dosage: UNK UNK, UNK
     Dates: start: 20140206
  11. LEVOFLOXACIN. [Concomitant]
     Active Substance: LEVOFLOXACIN
     Dosage: UNK UNK, UNK
     Dates: start: 20141031
  12. RITUXAN [Concomitant]
     Active Substance: RITUXIMAB
     Dosage: UNK UNK, UNK
  13. CYCLOPHOSPHAMIDE. [Concomitant]
     Active Substance: CYCLOPHOSPHAMIDE
     Dosage: UNK UNK, UNK
  14. BAYER GENUINE ASPIRIN [Suspect]
     Active Substance: ASPIRIN
     Indication: PYREXIA
     Dosage: UNK, UNK
     Route: 048
     Dates: start: 20141031
  15. IBRUTINIB [Suspect]
     Active Substance: IBRUTINIB
     Indication: MANTLE CELL LYMPHOMA
     Dosage: 560 MG, QD
     Route: 048
     Dates: start: 20141104, end: 2015
  16. ROFLUMILAST [Concomitant]
     Active Substance: ROFLUMILAST
     Dosage: UNK UNK, UNK
  17. ZYRTEC [Concomitant]
     Active Substance: CETIRIZINE HYDROCHLORIDE
     Dosage: UNK UNK, UNK
  18. MAGNESIUM [Concomitant]
     Active Substance: MAGNESIUM
     Dosage: UNK UNK, UNK
  19. CHONDROITIN W/GLUCOSAMINE/ METHYLSULFONYLEMETH. [Concomitant]
     Dosage: UNK UNK, UNK
     Dates: start: 20131118
  20. ZOFRAN [Concomitant]
     Active Substance: ONDANSETRON HYDROCHLORIDE
     Dosage: UNK UNK, UNK
     Dates: start: 20141027
  21. TEMAZEPAM. [Concomitant]
     Active Substance: TEMAZEPAM
     Dosage: UNK UNK, UNK
  22. AVODART [Concomitant]
     Active Substance: DUTASTERIDE
     Dosage: UNK UNK, UNK
  23. HEPARIN [Suspect]
     Active Substance: HEPARIN SODIUM
     Indication: PRODUCT USED FOR UNKNOWN INDICATION
  24. TRAMADOL [Concomitant]
     Active Substance: TRAMADOL
     Dosage: UNK UNK, UNK
  25. LEXAPRO [Concomitant]
     Active Substance: ESCITALOPRAM OXALATE
     Dosage: UNK UNK, UNK
     Dates: start: 20131118
  26. TYLENOL [Concomitant]
     Active Substance: ACETAMINOPHEN
     Dosage: UNK UNK, UNK
     Dates: start: 20131118
  27. DILTIAZEM [Concomitant]
     Active Substance: DILTIAZEM
     Dosage: UNK UNK, UNK
     Dates: start: 20131118
  28. PRILOSEC [Concomitant]
     Active Substance: OMEPRAZOLE MAGNESIUM
     Dosage: UNK UNK, UNK
     Dates: start: 20131118
  29. LASIX [Concomitant]
     Active Substance: FUROSEMIDE
     Dosage: UNK UNK, UNK
     Dates: start: 20141031

REACTIONS (6)
  - Rib fracture [Unknown]
  - Chronic obstructive pulmonary disease [Unknown]
  - Cardiac failure congestive [Unknown]
  - Osteopenia [Unknown]
  - Respiratory failure [Fatal]
  - Haemorrhage [Fatal]

NARRATIVE: CASE EVENT DATE: 201502
